FAERS Safety Report 8506869-3 (Version None)
Quarter: 2012Q3

REPORT INFORMATION
  Report Type: 
  Country: None (occurrence: None)
  Receive Date: 20120712
  Receipt Date: 20120710
  Transmission Date: 20120928
  Serious: No
  Sender: FDA-Public Use
  Company Number: US-PFIZER INC-2012152641

PATIENT
  Sex: Male

DRUGS (1)
  1. VISTARIL [Suspect]
     Dosage: 50 MG, 3X/DAY
     Route: 048

REACTIONS (1)
  - DEPRESSION [None]
